FAERS Safety Report 17628725 (Version 1)
Quarter: 2020Q2

REPORT INFORMATION
  Report Type: Spontaneous
  Country: US (occurrence: US)
  Receive Date: 20200406
  Receipt Date: 20200406
  Transmission Date: 20200713
  Serious: Yes (Hospitalization)
  Sender: FDA-Public Use
  Company Number: US-AMGEN-USASP2020054320

PATIENT
  Age: 66 Year
  Sex: Male
  Weight: 65.76 kg

DRUGS (1)
  1. ENBREL [Suspect]
     Active Substance: ETANERCEPT
     Indication: POLYMYALGIA RHEUMATICA
     Dosage: 50 MG, UNK (50MG, ONE SHOT A WEEK)
     Route: 065
     Dates: start: 202001, end: 202003

REACTIONS (9)
  - Off label use [Unknown]
  - Muscular weakness [Unknown]
  - Gait disturbance [Unknown]
  - Memory impairment [Unknown]
  - Drug ineffective for unapproved indication [Unknown]
  - Decreased appetite [Unknown]
  - Weight decreased [Unknown]
  - Condition aggravated [Unknown]
  - Depression [Unknown]

NARRATIVE: CASE EVENT DATE: 2020
